FAERS Safety Report 5879072-3 (Version None)
Quarter: 2008Q3

REPORT INFORMATION
  Report Type: 
  Country: None (occurrence: None)
  Receive Date: 20080910
  Receipt Date: 20080910
  Transmission Date: 20090109
  Serious: Yes (Hospitalization)
  Sender: FDA-Public Use
  Company Number: None

PATIENT
  Sex: Female
  Weight: 55 kg

DRUGS (13)
  1. CISPLATIN [Suspect]
     Dosage: 200 MG
     Dates: end: 20080804
  2. BUMEX [Concomitant]
  3. EFFEXOR XR [Concomitant]
  4. EVISTA [Concomitant]
  5. NORCO/ACETAMINOPHEN AND HYDROCODONE [Concomitant]
  6. PERCOCET [Concomitant]
  7. PRILOSEC [Concomitant]
  8. SINGULAIR [Concomitant]
  9. LORAZEPAM [Concomitant]
  10. MORPHINE [Concomitant]
  11. ORPHENADRINE CITRATE [Concomitant]
  12. PILOCARPINE [Concomitant]
  13. TRAZODONE HCL [Concomitant]

REACTIONS (3)
  - NEUTROPENIA [None]
  - PRODUCTIVE COUGH [None]
  - PYREXIA [None]
